FAERS Safety Report 17564954 (Version 1)
Quarter: 2020Q1

REPORT INFORMATION
  Report Type: Spontaneous
  Country: US (occurrence: US)
  Receive Date: 20200313
  Receipt Date: 20200313
  Transmission Date: 20200409
  Serious: Yes (Other)
  Sender: FDA-Public Use
  Company Number: None

PATIENT
  Age: 16 Year
  Sex: Male

DRUGS (2)
  1. TRIKAFTA [Suspect]
     Active Substance: ELEXACAFTOR\IVACAFTOR\TEZACAFTOR
     Dosage: ?          OTHER FREQUENCY:BLUE TAB QPM;?
     Route: 048
  2. TRIKAFTA [Suspect]
     Active Substance: ELEXACAFTOR\IVACAFTOR\TEZACAFTOR
     Indication: CYSTIC FIBROSIS
     Dosage: ?          OTHER FREQUENCY:ORANGE TAB QAM;?
     Route: 048
     Dates: start: 20200222

REACTIONS (2)
  - Insomnia [None]
  - Somnolence [None]

NARRATIVE: CASE EVENT DATE: 202002
